FAERS Safety Report 15979745 (Version 1)
Quarter: 2019Q1

REPORT INFORMATION
  Report Type: Spontaneous
  Country: US (occurrence: US)
  Receive Date: 20190219
  Receipt Date: 20190219
  Transmission Date: 20190418
  Serious: Yes (Hospitalization)
  Sender: FDA-Public Use
  Company Number: US-RECKITT BENCKISER HEALTHCARE INT LIMITED-RB-81876-2019

PATIENT
  Age: 2 Year
  Sex: Male

DRUGS (1)
  1. DELSYM [Suspect]
     Active Substance: DEXTROMETHORPHAN
     Indication: PRODUCT USED FOR UNKNOWN INDICATION
     Dosage: UNK, SINGLE (INGESTED AT LEAST HALF OF THE BOTTLE OF AN ADULT PRODUCT)
     Route: 048
     Dates: start: 20190208

REACTIONS (4)
  - Accidental exposure to product by child [Unknown]
  - Gait disturbance [Unknown]
  - Accidental overdose [Unknown]
  - Somnolence [Recovered/Resolved]

NARRATIVE: CASE EVENT DATE: 20190208
